FAERS Safety Report 11846531 (Version 1)
Quarter: 2015Q4

REPORT INFORMATION
  Report Type: Other
  Country: US (occurrence: US)
  Receive Date: 20151217
  Receipt Date: 20151217
  Transmission Date: 20160305
  Serious: No
  Sender: FDA-Public Use
  Company Number: US-GALENA BIOPHARMA-1045617

PATIENT
  Sex: Female

DRUGS (2)
  1. OXYMORPHONE HYDROCHLORIDE. [Concomitant]
     Active Substance: OXYMORPHONE HYDROCHLORIDE
  2. ABSTRAL [Suspect]
     Active Substance: FENTANYL CITRATE
     Indication: BREAKTHROUGH PAIN
     Route: 060
     Dates: start: 20141117

REACTIONS (2)
  - Drug ineffective [Recovered/Resolved]
  - Product packaging issue [None]

NARRATIVE: CASE EVENT DATE: 20141117
